FAERS Safety Report 6265110-5 (Version None)
Quarter: 2009Q3

REPORT INFORMATION
  Report Type: 
  Country: None (occurrence: None)
  Receive Date: 20090709
  Receipt Date: 20090709
  Transmission Date: 20100115
  Serious: Yes (Other)
  Sender: FDA-Public Use
  Company Number: None

PATIENT
  Age: 76 Year
  Sex: Female
  Weight: 90.7194 kg

DRUGS (5)
  1. HYDRALAZINE HCL [Suspect]
     Indication: HYPERTENSION
     Dosage: 1 TWICE DAILY
     Dates: start: 20080506
  2. HYDRALAZINE HCL [Suspect]
     Indication: HYPERTENSION
     Dosage: 1 TWICE DAILY
     Dates: start: 20080506
  3. HYDRALAZINE HCL [Suspect]
     Indication: HYPERTENSION
     Dosage: 1 TWICE DAILY
     Dates: start: 20080507
  4. HYDRALAZINE HCL [Suspect]
     Indication: HYPERTENSION
     Dosage: 1 TWICE DAILY
     Dates: start: 20080508
  5. HYDRALAZINE HCL [Suspect]
     Indication: HYPERTENSION
     Dosage: 1 TWICE DAILY
     Dates: start: 20080511

REACTIONS (6)
  - ARTHRALGIA [None]
  - ASTHENIA [None]
  - GROIN PAIN [None]
  - MUSCULAR WEAKNESS [None]
  - MYALGIA [None]
  - URINE OUTPUT DECREASED [None]
